FAERS Safety Report 9131969 (Version 2)
Quarter: 2015Q2

REPORT INFORMATION
  Report Type: Spontaneous
  Country: US (occurrence: US)
  Receive Date: 20130301
  Receipt Date: 20150630
  Transmission Date: 20150821
  Serious: Yes (Other)
  Sender: FDA-Public Use
  Company Number: US-BAYER-2013-026404

PATIENT
  Age: 43 Year
  Sex: Female
  Weight: 68.27 kg

DRUGS (14)
  1. YAZ [Suspect]
     Active Substance: DROSPIRENONE\ETHINYL ESTRADIOL
     Indication: CONTRACEPTION
     Dosage: UNK
     Dates: start: 2008, end: 2012
  2. YAZ [Suspect]
     Active Substance: DROSPIRENONE\ETHINYL ESTRADIOL
     Indication: CONTRACEPTION
     Dosage: UNK
     Dates: start: 20090112
  3. GIANVI [Suspect]
     Active Substance: DROSPIRENONE\ETHINYL ESTRADIOL
     Indication: CONTRACEPTION
     Dosage: UNK
     Dates: start: 2008, end: 2012
  4. PREVIDENT [Concomitant]
     Active Substance: SODIUM FLUORIDE
     Dosage: 0.2% SOLUTION
  5. IBUPROFEN AL [Concomitant]
     Active Substance: IBUPROFEN
     Indication: PYREXIA
  6. YAZ [Suspect]
     Active Substance: DROSPIRENONE\ETHINYL ESTRADIOL
     Indication: MENSTRUAL CYCLE MANAGEMENT
     Dosage: UNK
     Dates: start: 20081026, end: 20081119
  7. YAZ [Suspect]
     Active Substance: DROSPIRENONE\ETHINYL ESTRADIOL
     Indication: CONTRACEPTION
     Dosage: UNK
     Dates: start: 20090330, end: 20100403
  8. AMOXICILLIN. [Concomitant]
     Active Substance: AMOXICILLIN
     Indication: DENTAL COSMETIC PROCEDURE
     Dosage: 500 MG, UNK
  9. HYDROCODONE BITARTRATE AND ACETAMINOPHEN [Concomitant]
     Active Substance: ACETAMINOPHEN\HYDROCODONE BITARTRATE
     Dosage: 5-500
  10. IBUPROFEN AL [Concomitant]
     Active Substance: IBUPROFEN
     Indication: MYALGIA
     Dosage: FOR 15 YEARS
  11. IBUPROFEN AL [Concomitant]
     Active Substance: IBUPROFEN
     Indication: HEADACHE
  12. GIANVI [Suspect]
     Active Substance: DROSPIRENONE\ETHINYL ESTRADIOL
     Indication: MENSTRUAL CYCLE MANAGEMENT
  13. AMOXICILLIN. [Concomitant]
     Active Substance: AMOXICILLIN
     Indication: DENTAL COSMETIC PROCEDURE
     Dosage: 10 DAYS AND 7 DAYS COURSE
     Dates: start: 201206, end: 201207
  14. IBUPROFEN AL [Concomitant]
     Active Substance: IBUPROFEN
     Indication: MUSCLE SPASMS

REACTIONS (3)
  - Pain in extremity [None]
  - Menorrhagia [None]
  - Deep vein thrombosis [None]

NARRATIVE: CASE EVENT DATE: 20120907
